FAERS Safety Report 12591767 (Version 2)
Quarter: 2016Q3

REPORT INFORMATION
  Report Type: Report from Study
  Country: ES (occurrence: ES)
  Receive Date: 20160726
  Receipt Date: 20160912
  Transmission Date: 20161109
  Serious: Yes (Hospitalization)
  Sender: FDA-Public Use
  Company Number: ES-BRISTOL-MYERS SQUIBB COMPANY-BMS-2016-059740

PATIENT
  Age: 64 Year
  Sex: Male

DRUGS (2)
  1. IPILIMUMAB [Suspect]
     Active Substance: IPILIMUMAB
     Indication: METASTATIC MALIGNANT MELANOMA
     Dosage: 282 MG, UNK
     Route: 042
     Dates: start: 20160622, end: 20160713
  2. NIVOLUMAB [Suspect]
     Active Substance: NIVOLUMAB
     Indication: METASTATIC MALIGNANT MELANOMA
     Dosage: 94 MG, UNK
     Route: 042
     Dates: start: 20160622, end: 20160713

REACTIONS (1)
  - Thyroiditis [Recovered/Resolved]

NARRATIVE: CASE EVENT DATE: 20160718
